FAERS Safety Report 10161414 (Version 1)
Quarter: 2014Q2

REPORT INFORMATION
  Report Type: Spontaneous
  Country: US (occurrence: US)
  Receive Date: 20140509
  Receipt Date: 20140509
  Transmission Date: 20141212
  Serious: No
  Sender: FDA-Public Use
  Company Number: US-009507513-1405USA001777

PATIENT
  Age: 37 Year
  Sex: Female

DRUGS (1)
  1. SINGULAIR [Suspect]
     Indication: HYPERSENSITIVITY
     Dosage: 10 MG DAILY
     Route: 048
     Dates: start: 20131209, end: 20131212

REACTIONS (5)
  - Tearfulness [Recovering/Resolving]
  - Abnormal dreams [Recovering/Resolving]
  - Emotional disorder [Recovering/Resolving]
  - Crying [Recovering/Resolving]
  - Dysphoria [Recovering/Resolving]
